FAERS Safety Report 6280305-2 (Version None)
Quarter: 2009Q3

REPORT INFORMATION
  Report Type: 
  Country: None (occurrence: None)
  Receive Date: 20090724
  Receipt Date: 20071009
  Transmission Date: 20100115
  Serious: Yes (Death)
  Sender: FDA-Public Use
  Company Number: US-ASTRAZENECA-2007UW12256

PATIENT
  Age: 29344 Day
  Sex: Male
  Weight: 50.8 kg

DRUGS (19)
  1. SEROQUEL [Suspect]
     Indication: SLEEP DISORDER
     Dosage: 25 MG-50 MG
     Route: 048
     Dates: start: 19990902
  2. SEROQUEL [Suspect]
     Indication: AGITATION
     Dosage: 25 MG-50 MG
     Route: 048
     Dates: start: 19990902
  3. SEROQUEL [Suspect]
     Route: 048
     Dates: start: 20000601, end: 20010628
  4. SEROQUEL [Suspect]
     Route: 048
     Dates: start: 20000601, end: 20010628
  5. RISPERDAL [Concomitant]
  6. VERSED [Concomitant]
  7. BUSPAR [Concomitant]
  8. PLENDIL [Concomitant]
  9. ARICEPT [Concomitant]
  10. KLONOPIN [Concomitant]
  11. TRAZODONE [Concomitant]
  12. ASPIRIN [Concomitant]
  13. HYDROXYZINE [Concomitant]
  14. ALBUTEROL [Concomitant]
  15. METOCLOPRAMIDE [Concomitant]
  16. LORAZEPAM [Concomitant]
  17. TRIAMCINOLONE [Concomitant]
  18. TRANXENE [Concomitant]
  19. RANITIDINE [Concomitant]

REACTIONS (6)
  - ASPIRATION [None]
  - CELLULITIS [None]
  - NEUROGENIC BLADDER [None]
  - SEPSIS [None]
  - TYPE 2 DIABETES MELLITUS [None]
  - VASCULAR DEMENTIA [None]
